FAERS Safety Report 5351916-3 (Version None)
Quarter: 2007Q2

REPORT INFORMATION
  Report Type: 
  Country: None (occurrence: None)
  Receive Date: 20070609
  Receipt Date: 20070531
  Transmission Date: 20071010
  Serious: Yes (Hospitalization)
  Sender: FDA-Public Use
  Company Number: FR-ABBOTT-07P-056-0370157-00

PATIENT
  Age: 40 Year
  Sex: Male
  Weight: 54 kg

DRUGS (4)
  1. NORVIR [Suspect]
     Indication: HIV INFECTION
     Route: 048
     Dates: start: 20061226
  2. ATAZANAVIR SULFATE [Suspect]
     Indication: HIV INFECTION
     Route: 048
     Dates: start: 20061226
  3. TENOFOVIR [Suspect]
     Indication: HIV INFECTION
     Route: 048
     Dates: start: 20061226
  4. ABACAVIR [Suspect]
     Indication: HIV INFECTION
     Route: 048
     Dates: start: 20061226

REACTIONS (1)
  - RENAL COLIC [None]
